FAERS Safety Report 9097960 (Version 1)
Quarter: 2013Q1

REPORT INFORMATION
  Report Type: Spontaneous
  Country: US (occurrence: US)
  Receive Date: 20130212
  Receipt Date: 20130212
  Transmission Date: 20140127
  Serious: No
  Sender: FDA-Public Use
  Company Number: US-PFIZER INC-2013055473

PATIENT
  Age: 77 Year
  Sex: Female
  Weight: 77.1 kg

DRUGS (2)
  1. CELEBREX [Suspect]
     Indication: ARTHRITIS
     Dosage: 200 MG, 1X/DAY
  2. LYRICA [Concomitant]
     Indication: NERVOUS SYSTEM DISORDER
     Dosage: 75 MG, 2X/DAY

REACTIONS (1)
  - Arthralgia [Unknown]
